FAERS Safety Report 8866124 (Version 3)
Quarter: 2012Q4

REPORT INFORMATION
  Report Type: 
  Country: US (occurrence: US)
  Receive Date: 20121025
  Receipt Date: 20121211
  Transmission Date: 20130627
  Serious: Yes (Other)
  Sender: FDA-Public Use
  Company Number: US-PFIZER INC-2012266094

PATIENT
  Age: 49 Year
  Sex: Female
  Weight: 77.1 kg

DRUGS (3)
  1. NEURONTIN [Suspect]
     Indication: NERVE DAMAGE
     Dosage: 300 mg, 3x/day
     Dates: start: 2003
  2. NEURONTIN [Suspect]
     Indication: BACK INJURY
  3. CELEBREX [Suspect]
     Indication: ARTHRITIS
     Dosage: 100 mg, 2x/day
     Route: 048
     Dates: start: 2011

REACTIONS (1)
  - Glaucoma [Unknown]
